FAERS Safety Report 12405743 (Version 1)
Quarter: 2016Q2

REPORT INFORMATION
  Report Type: Spontaneous
  Country: US (occurrence: None)
  Receive Date: 20160525
  Receipt Date: 20160525
  Transmission Date: 20160815
  Serious: No
  Sender: FDA-Public Use
  Company Number: None

PATIENT
  Sex: Male

DRUGS (3)
  1. GLIPIZIDE. [Suspect]
     Active Substance: GLIPIZIDE
  2. LANTUS [Suspect]
     Active Substance: INSULIN GLARGINE
  3. NOVOLIN [Suspect]
     Active Substance: INSULIN HUMAN

REACTIONS (7)
  - Diabetic coma [None]
  - Road traffic accident [None]
  - Glycosylated haemoglobin increased [None]
  - Migraine [None]
  - Blood glucose increased [None]
  - Cerebral haemorrhage [None]
  - Drug ineffective [None]
